FAERS Safety Report 12365558 (Version 1)
Quarter: 2016Q2

REPORT INFORMATION
  Report Type: Spontaneous
  Country: US (occurrence: None)
  Receive Date: 20160512
  Receipt Date: 20160512
  Transmission Date: 20160815
  Serious: No
  Sender: FDA-Public Use
  Company Number: None

PATIENT
  Sex: Female

DRUGS (3)
  1. HUMALOG 70/30 [Suspect]
     Active Substance: INSULIN HUMAN
  2. NPH INSULIN [Suspect]
     Active Substance: INSULIN BEEF
  3. LEVEMIR [Suspect]
     Active Substance: INSULIN DETEMIR

REACTIONS (3)
  - Malaise [None]
  - Glycosylated haemoglobin increased [None]
  - Drug tolerance [None]
